FAERS Safety Report 8203226-4 (Version None)
Quarter: 2012Q1

REPORT INFORMATION
  Report Type: 
  Country: None (occurrence: None)
  Receive Date: 20120312
  Receipt Date: 20120302
  Transmission Date: 20120608
  Serious: Yes (Death)
  Sender: FDA-Public Use
  Company Number: US-ROCHE-1045376

PATIENT
  Sex: Female

DRUGS (9)
  1. RANIBIZUMAB [Suspect]
     Indication: MACULAR OEDEMA
     Route: 050
     Dates: start: 20100504
  2. ZOCOR [Concomitant]
     Dates: start: 20050101, end: 20120228
  3. SYNTHROID [Concomitant]
     Dates: start: 20050101, end: 20120228
  4. FOLIC ACID [Concomitant]
     Dates: start: 20050101, end: 20120228
  5. LETROZOLE [Concomitant]
     Dates: start: 20090101, end: 20120228
  6. PLAVIX [Concomitant]
     Dates: start: 20050101, end: 20120228
  7. TOPAMAX [Concomitant]
     Dates: start: 20050101, end: 20120228
  8. NEURONTIN [Concomitant]
     Dates: start: 20050101, end: 20120228
  9. TOPROL-XL [Concomitant]
     Dates: start: 20050101, end: 20120228

REACTIONS (1)
  - PNEUMONIA [None]
